FAERS Safety Report 23044274 (Version 1)
Quarter: 2023Q4

REPORT INFORMATION
  Report Type: Spontaneous
  Country: ES (occurrence: ES)
  Receive Date: 20231009
  Receipt Date: 20231009
  Transmission Date: 20240110
  Serious: Yes (Hospitalization, Other)
  Sender: FDA-Public Use
  Company Number: None

PATIENT

DRUGS (5)
  1. ZONISAMIDE [Interacting]
     Active Substance: ZONISAMIDE
     Indication: Temporal lobe epilepsy
     Dosage: 300 MG, QD
     Route: 048
     Dates: start: 202304, end: 20230509
  2. LEVETIRACETAM [Interacting]
     Active Substance: LEVETIRACETAM
     Indication: Temporal lobe epilepsy
     Dosage: 1500 MG, BID
     Route: 048
     Dates: start: 20230507, end: 20230509
  3. ESLICARBAZEPINE ACETATE [Concomitant]
     Active Substance: ESLICARBAZEPINE ACETATE
     Indication: Temporal lobe epilepsy
     Dosage: 800 MG, QD
     Route: 048
     Dates: start: 202202, end: 20230507
  4. MIDAZOLAM [Concomitant]
     Active Substance: MIDAZOLAM
     Indication: Status epilepticus
     Dosage: 13 G (TOTAL)
     Route: 042
     Dates: start: 20230507, end: 20230507
  5. LACOSAMIDE [Concomitant]
     Active Substance: LACOSAMIDE
     Indication: Temporal lobe epilepsy
     Dosage: 200 MG, BID
     Route: 048
     Dates: start: 201811, end: 20230507

REACTIONS (1)
  - Acute kidney injury [Recovered/Resolved]

NARRATIVE: CASE EVENT DATE: 20230507
